FAERS Safety Report 16613680 (Version 1)
Quarter: 2019Q3

REPORT INFORMATION
  Report Type: Spontaneous
  Country: PL (occurrence: PL)
  Receive Date: 20190723
  Receipt Date: 20190723
  Transmission Date: 20191004
  Serious: Yes (Other)
  Sender: FDA-Public Use
  Company Number: PL-ROCHE-2357989

PATIENT
  Age: 19 Year
  Sex: Female

DRUGS (8)
  1. MYCOPHENOLATE MOFETIL. [Suspect]
     Active Substance: MYCOPHENOLATE MOFETIL
     Indication: ACUTE GRAFT VERSUS HOST DISEASE
     Route: 065
  2. BASILIXIMAB [Suspect]
     Active Substance: BASILIXIMAB
     Indication: OFF LABEL USE
  3. ETANERCEPT [Suspect]
     Active Substance: ETANERCEPT
     Indication: ACUTE GRAFT VERSUS HOST DISEASE
     Route: 065
  4. RITUXIMAB. [Suspect]
     Active Substance: RITUXIMAB
     Indication: ACUTE GRAFT VERSUS HOST DISEASE
     Route: 065
  5. RITUXIMAB. [Suspect]
     Active Substance: RITUXIMAB
     Indication: OFF LABEL USE
  6. MYCOPHENOLATE MOFETIL. [Suspect]
     Active Substance: MYCOPHENOLATE MOFETIL
     Indication: OFF LABEL USE
  7. ETANERCEPT [Suspect]
     Active Substance: ETANERCEPT
     Indication: OFF LABEL USE
  8. BASILIXIMAB [Suspect]
     Active Substance: BASILIXIMAB
     Indication: ACUTE GRAFT VERSUS HOST DISEASE
     Route: 065

REACTIONS (4)
  - Thrombotic microangiopathy [Unknown]
  - Off label use [Unknown]
  - Intentional product use issue [Unknown]
  - Acute kidney injury [Unknown]
